FAERS Safety Report 10095010 (Version 1)
Quarter: 2014Q2

REPORT INFORMATION
  Report Type: Spontaneous
  Country: FR (occurrence: FR)
  Receive Date: 20140422
  Receipt Date: 20140422
  Transmission Date: 20141212
  Serious: Yes (Other)
  Sender: FDA-Public Use
  Company Number: FR-ACTAVIS-2014-07603

PATIENT
  Age: 1 Month
  Sex: Male

DRUGS (4)
  1. DOXAPRAM HYDROCHLORIDE (WATSON LABORATORIES) [Suspect]
     Indication: APNOEA NEONATAL
     Dosage: 7.5 MG/KG, QID
     Route: 048
  2. FUROSEMIDE (UNKNOWN) [Suspect]
     Indication: WEIGHT INCREASED
     Dosage: 0.5 MG/KG, DAILY
     Route: 065
  3. CAFFEINE (UNKNOWN) [Suspect]
     Indication: PRODUCT USED FOR UNKNOWN INDICATION
     Dosage: UNK
     Route: 065
  4. CAFFEINE (UNKNOWN) [Suspect]
     Dosage: 2.5 MG/KG, DAILY
     Route: 065

REACTIONS (1)
  - Hypokalaemia [Recovered/Resolved]
